FAERS Safety Report 5742829-3 (Version None)
Quarter: 2008Q2

REPORT INFORMATION
  Report Type: 
  Country: None (occurrence: None)
  Receive Date: 20080515
  Receipt Date: 20080515
  Transmission Date: 20081010
  Serious: Yes (Hospitalization)
  Sender: FDA-Public Use
  Company Number: None

PATIENT
  Age: 67 Year
  Sex: Male
  Weight: 129.73 kg

DRUGS (1)
  1. SPIRONOLACTONE [Suspect]
     Indication: CARDIAC FAILURE CONGESTIVE
     Dosage: 25 MG EVERY DAY PO
     Route: 048
     Dates: start: 20070917, end: 20080323

REACTIONS (5)
  - BRADYCARDIA [None]
  - CHEST PAIN [None]
  - FATIGUE [None]
  - HYPERKALAEMIA [None]
  - MUSCULAR WEAKNESS [None]
